FAERS Safety Report 8865084 (Version 1)
Quarter: 2012Q4

REPORT INFORMATION
  Report Type: 
  Country: US (occurrence: US)
  Receive Date: 20121024
  Receipt Date: 20121024
  Transmission Date: 20130627
  Serious: No
  Sender: FDA-Public Use
  Company Number: US-AMGEN-USASP2012000908

PATIENT
  Age: 55 Year
  Sex: Male

DRUGS (8)
  1. ENBREL [Suspect]
     Indication: PRODUCT USED FOR UNKNOWN INDICATION
     Dosage: 50 mg, qwk
     Route: 058
  2. MULTIVITAMIN                       /00097801/ [Concomitant]
  3. B COMPLEX                          /02945401/ [Concomitant]
  4. FISH OIL [Concomitant]
  5. CYMBALTA [Concomitant]
     Dosage: 20 mg, UNK
  6. DOVONEX [Concomitant]
  7. CLOBETASOL 0.05% [Concomitant]
  8. CALCIUM 500+D [Concomitant]

REACTIONS (1)
  - Injection site swelling [Unknown]
